FAERS Safety Report 17542346 (Version 1)
Quarter: 2020Q1

REPORT INFORMATION
  Report Type: Spontaneous
  Country: US (occurrence: US)
  Receive Date: 20200313
  Receipt Date: 20200313
  Transmission Date: 20200409
  Serious: Yes (Hospitalization)
  Sender: FDA-Public Use
  Company Number: US-ROCHE-2566734

PATIENT
  Sex: Male

DRUGS (11)
  1. METFORMIN HYDROCHLORIDE. [Concomitant]
     Active Substance: METFORMIN HYDROCHLORIDE
     Route: 065
  2. FISH OIL [Concomitant]
     Active Substance: FISH OIL
  3. QUINAPRIL. [Concomitant]
     Active Substance: QUINAPRIL
  4. RANITIDINE HCL [Concomitant]
     Active Substance: RANITIDINE HYDROCHLORIDE
  5. ASPIRIN 81 [Concomitant]
     Active Substance: ASPIRIN
  6. NORVASC [Concomitant]
     Active Substance: AMLODIPINE BESYLATE
  7. CYCLOBENZAPRINE HCL [Concomitant]
     Active Substance: CYCLOBENZAPRINE HYDROCHLORIDE
  8. HYDROCHLOROTHIAZIDE. [Concomitant]
     Active Substance: HYDROCHLOROTHIAZIDE
  9. NITROGLYCERIN. [Concomitant]
     Active Substance: NITROGLYCERIN
  10. ESBRIET [Suspect]
     Active Substance: PIRFENIDONE
     Indication: INTERSTITIAL LUNG DISEASE
     Dosage: 3 CAPSULES 3 TIMES A DAY WITH FOOD
     Route: 048
  11. LIVALO [Concomitant]
     Active Substance: PITAVASTATIN CALCIUM

REACTIONS (3)
  - Cardiac arrest [Not Recovered/Not Resolved]
  - Dyskinesia [Not Recovered/Not Resolved]
  - Sepsis [Not Recovered/Not Resolved]
